FAERS Safety Report 18605946 (Version 2)
Quarter: 2023Q2

REPORT INFORMATION
  Report Type: Spontaneous
  Country: HU (occurrence: HU)
  Receive Date: 20201211
  Receipt Date: 20230524
  Transmission Date: 20230722
  Serious: Yes (Hospitalization, Other)
  Sender: FDA-Public Use
  Company Number: HU-ELI_LILLY_AND_COMPANY-HU202012004011

PATIENT
  Age: 74 Year
  Sex: Male

DRUGS (2)
  1. PEMETREXED [Suspect]
     Active Substance: PEMETREXED
     Indication: Lung adenocarcinoma
     Dosage: UNK, UNKNOWN
     Route: 065
  2. CARBOPLATIN [Concomitant]
     Active Substance: CARBOPLATIN
     Indication: Lung adenocarcinoma
     Dosage: UNK, UNKNOWN
     Route: 065

REACTIONS (6)
  - Toxicity to various agents [Unknown]
  - Pancytopenia [Unknown]
  - Leukopenia [Unknown]
  - Sepsis [Unknown]
  - Pneumonia [Unknown]
  - Off label use [Unknown]
